FAERS Safety Report 8545008-X (Version None)
Quarter: 2012Q3

REPORT INFORMATION
  Report Type: 
  Country: None (occurrence: None)
  Receive Date: 20120727
  Receipt Date: 20120717
  Transmission Date: 20120928
  Serious: Yes (Other)
  Sender: FDA-Public Use
  Company Number: JP-GLAXOSMITHKLINE-B0816057A

PATIENT
  Age: 46 Year
  Sex: Male

DRUGS (5)
  1. MAPROTILINE HYDROCHLORIDE [Concomitant]
     Indication: DEPRESSION
     Dosage: 20MG PER DAY
     Route: 048
  2. PAXIL [Suspect]
     Dosage: 30MG PER DAY
     Route: 048
  3. PAXIL [Suspect]
     Dosage: 20MG PER DAY
     Route: 048
  4. MAPROTILINE HYDROCHLORIDE [Concomitant]
     Dosage: 50MG PER DAY
     Route: 048
  5. PAXIL [Suspect]
     Indication: DEPRESSION
     Dosage: 40MG PER DAY
     Route: 048

REACTIONS (34)
  - SEROTONIN SYNDROME [None]
  - INSOMNIA [None]
  - AMNESIA [None]
  - MYDRIASIS [None]
  - LISTLESS [None]
  - MALAISE [None]
  - MYOCLONUS [None]
  - INCORRECT DOSE ADMINISTERED [None]
  - STRESS [None]
  - HYPOMANIA [None]
  - NERVOUSNESS [None]
  - ABNORMAL BEHAVIOUR [None]
  - HYPERHIDROSIS [None]
  - TACHYPNOEA [None]
  - DELIRIUM [None]
  - ANXIETY [None]
  - HYPERACUSIS [None]
  - APHONIA [None]
  - DISORIENTATION [None]
  - AGITATION [None]
  - PSYCHIATRIC SYMPTOM [None]
  - DISSOCIATION [None]
  - FEELING ABNORMAL [None]
  - TREMOR [None]
  - DEREALISATION [None]
  - TACHYCARDIA [None]
  - CONFUSIONAL STATE [None]
  - HYPERREFLEXIA [None]
  - NUCHAL RIGIDITY [None]
  - IRRITABILITY [None]
  - APATHY [None]
  - TINNITUS [None]
  - HOT FLUSH [None]
  - PYREXIA [None]
